FAERS Safety Report 8122199-6 (Version None)
Quarter: 2012Q1

REPORT INFORMATION
  Report Type: 
  Country: None (occurrence: None)
  Receive Date: 20120208
  Receipt Date: 20120127
  Transmission Date: 20120608
  Serious: Yes (Other)
  Sender: FDA-Public Use
  Company Number: US-BAYER-2011-092503

PATIENT
  Age: 28 Year
  Sex: Female
  Weight: 91 kg

DRUGS (5)
  1. ALBUTEROL [Concomitant]
     Dosage: UNK
     Dates: start: 20010101
  2. YAZ [Suspect]
     Indication: PREMENSTRUAL SYNDROME
  3. YAZ [Suspect]
  4. ADVAIR DISKUS 100/50 [Concomitant]
     Dosage: UNK
     Dates: start: 20010101
  5. YAZ [Suspect]
     Indication: CONTRACEPTION
     Dosage: UNK
     Dates: start: 20050101

REACTIONS (5)
  - EMOTIONAL DISTRESS [None]
  - CHOLECYSTITIS CHRONIC [None]
  - GALLBLADDER DISORDER [None]
  - BILIARY COLIC [None]
  - INJURY [None]
